FAERS Safety Report 7622145-5 (Version None)
Quarter: 2011Q3

REPORT INFORMATION
  Report Type: 
  Country: None (occurrence: None)
  Receive Date: 20110720
  Receipt Date: 20101129
  Transmission Date: 20111222
  Serious: Yes (Other)
  Sender: FDA-Public Use
  Company Number: US-BAYER-201014099NA

PATIENT
  Age: 54 Year
  Sex: Female

DRUGS (11)
  1. YASMIN [Suspect]
     Indication: PREMENSTRUAL SYNDROME
     Route: 048
     Dates: start: 20060101, end: 20070115
  2. PROZAC [Concomitant]
     Indication: ANXIETY
  3. CARISOPRODOL [Concomitant]
     Dosage: 350 MG (DAILY DOSE), ,
     Dates: start: 20061227
  4. SULFAMETHOXAZOLE AND TRIMETHOPRIM DOUBLE STRENGTH [Concomitant]
     Dates: start: 20070118
  5. PREMPRO [Concomitant]
  6. DICLOFENAC [Concomitant]
     Dosage: 75 MG (DAILY DOSE), ,
     Dates: start: 20061227
  7. HYDROCODONE BITARTRATE AND ACETAMINOPHEN [Concomitant]
     Dates: start: 20070118
  8. METHYLPREDNISOLONE [Concomitant]
     Dosage: 4 MG (DAILY DOSE), ,
     Dates: start: 20070118
  9. METHYLPREDNISOLONE ACETATE [Concomitant]
     Dosage: 4 MG (DAILY DOSE), ,
     Dates: start: 20070118
  10. PROZAC [Concomitant]
     Indication: SLEEP DISORDER
     Dates: start: 20080101, end: 20100615
  11. HYDROCODONE BITARTRATE AND ACETAMINOPHEN [Concomitant]
     Dates: start: 20070118

REACTIONS (2)
  - PULMONARY EMBOLISM [None]
  - DYSPNOEA [None]
